FAERS Safety Report 7336218 (Version 3)
Quarter: 2018Q3

REPORT INFORMATION
  Report Type: Spontaneous
  Country: FR (occurrence: FR)
  Receive Date: 20100330
  Receipt Date: 20180912
  Transmission Date: 20181010
  Serious: Yes (Hospitalization)
  Sender: FDA-Public Use
  Company Number: FR-PFIZER INC-2010034855

PATIENT
  Age: 64 Year
  Sex: Male

DRUGS (10)
  1. SUTENT [Interacting]
     Active Substance: SUNITINIB MALATE
     Dosage: UNK
     Dates: start: 20100124, end: 20100127
  2. SUTENT [Interacting]
     Active Substance: SUNITINIB MALATE
     Dosage: UNK
  3. MONO?TILDIEM [Interacting]
     Active Substance: DILTIAZEM HYDROCHLORIDE
     Dosage: 200 MG, DAILY
     Route: 048
     Dates: end: 20100119
  4. PARACETAMOL [Concomitant]
     Active Substance: ACETAMINOPHEN
  5. ASPIRIN [ACETYLSALICYLIC ACID] [Concomitant]
     Active Substance: ASPIRIN
     Dosage: 325 MG, DAILY
  6. ZOCOR [Concomitant]
     Active Substance: SIMVASTATIN
     Dosage: 40 MG, DAILY
  7. LIORESAL [Interacting]
     Active Substance: BACLOFEN
     Dosage: 1 DF, 3X/DAY
     Route: 048
     Dates: start: 20100113, end: 20100119
  8. SUTENT [Suspect]
     Active Substance: SUNITINIB MALATE
     Dosage: 50 MG, 1X/DAY
     Route: 048
     Dates: start: 20091120, end: 20091227
  9. INIPOMP [Concomitant]
     Active Substance: PANTOPRAZOLE SODIUM
     Dosage: 40 MG, DAILY
  10. ALDACTAZINE [Concomitant]
     Active Substance: ALTHIAZIDE\SPIRONOLACTONE
     Dosage: 0.5 DF, DAILY

REACTIONS (3)
  - Drug interaction [Not Recovered/Not Resolved]
  - Pyrexia [Unknown]
  - Ventricular tachycardia [Not Recovered/Not Resolved]

NARRATIVE: CASE EVENT DATE: 20100119
